FAERS Safety Report 18582461 (Version 2)
Quarter: 2020Q4

REPORT INFORMATION
  Report Type: Report from Study
  Country: None (occurrence: IL)
  Receive Date: 20201205
  Receipt Date: 20201216
  Transmission Date: 20210114
  Serious: Yes (Hospitalization)
  Sender: FDA-Public Use
  Company Number: IL-ABBVIE-20K-082-3251285-00

PATIENT
  Age: 68 Year
  Sex: Male

DRUGS (6)
  1. DUODOPA [Suspect]
     Active Substance: CARBIDOPA\LEVODOPA
     Dosage: CURRENT: MD 11ML, CONTINUOUS DAY DOSE 3.7ML/HOUR, CONTINUOUS NIGHT DOSE 1.7ML/HOUR, ED 1ML
     Route: 050
     Dates: start: 2020, end: 2020
  2. AVILAC [Concomitant]
     Indication: PRODUCT USED FOR UNKNOWN INDICATION
  3. DUODOPA [Suspect]
     Active Substance: CARBIDOPA\LEVODOPA
     Dosage: MORNING DOSE 12.0 ML, FIXED RATE 4.0 ML PER HOUR AND EXTRA DOSE 1.5 ML
     Route: 050
     Dates: start: 20200120, end: 20200120
  4. DUODOPA [Suspect]
     Active Substance: CARBIDOPA\LEVODOPA
     Indication: PARKINSON^S DISEASE
     Dosage: MD 11 ML, CD 3.7 ML/HOUR, ED 1.0 ML,REMAINS AT 16 HOURS.
     Route: 050
     Dates: start: 20140219
  5. DUODOPA [Suspect]
     Active Substance: CARBIDOPA\LEVODOPA
     Dosage: CURRENT: MD  11ML, CD 3.7, ED 1.0ML?THERAPY DURATION AT 16 HRS
     Route: 050
     Dates: start: 2020
  6. DUODOPA [Suspect]
     Active Substance: CARBIDOPA\LEVODOPA
     Dosage: MORNING DOSE 11.0 ML, FIXED RATE 3.7 ML PER HOUR AND EXTRA DOSE 1.0 ML.
     Route: 050
     Dates: start: 20200120, end: 2020

REACTIONS (14)
  - Gait disturbance [Unknown]
  - Loss of personal independence in daily activities [Unknown]
  - Depressed mood [Unknown]
  - Haemoglobin decreased [Unknown]
  - Device issue [Recovering/Resolving]
  - Gait disturbance [Unknown]
  - Balance disorder [Unknown]
  - Pallor [Unknown]
  - Fatigue [Unknown]
  - Feeling abnormal [Unknown]
  - Malaise [Unknown]
  - Dyskinesia [Recovering/Resolving]
  - Therapeutic product effect incomplete [Unknown]
  - Asthenia [Unknown]

NARRATIVE: CASE EVENT DATE: 2020
